FAERS Safety Report 19139216 (Version 1)
Quarter: 2021Q2

REPORT INFORMATION
  Report Type: Spontaneous
  Country: US (occurrence: US)
  Receive Date: 20210414
  Receipt Date: 20210414
  Transmission Date: 20210717
  Serious: No
  Sender: FDA-Public Use
  Company Number: None

PATIENT
  Age: 71 Year
  Sex: Female
  Weight: 61.2 kg

DRUGS (13)
  1. IBUPROPHEN [Concomitant]
     Active Substance: IBUPROFEN
  2. ADVIL [Concomitant]
     Active Substance: IBUPROFEN
  3. VITAMIN E [Concomitant]
     Active Substance: .ALPHA.-TOCOPHEROL
  4. COENZYME Q10 [Concomitant]
     Active Substance: DIETARY SUPPLEMENT\UBIDECARENONE
  5. MAGNESIUM [Concomitant]
     Active Substance: MAGNESIUM
  6. XIIDRA [Suspect]
     Active Substance: LIFITEGRAST
     Indication: DRY EYE
     Dosage: ?          QUANTITY:1 DROP(S);?
     Route: 047
     Dates: start: 20210323, end: 20210408
  7. LISINOPRIL. [Concomitant]
     Active Substance: LISINOPRIL
  8. ZOLPIDEM [Concomitant]
     Active Substance: ZOLPIDEM TARTRATE
  9. MULTIVITAMIN [Concomitant]
     Active Substance: VITAMINS
  10. BIOTIN [Concomitant]
     Active Substance: BIOTIN
  11. LEVOTHYROXINE. [Concomitant]
     Active Substance: LEVOTHYROXINE
  12. VITAMIN E [Concomitant]
     Active Substance: .ALPHA.-TOCOPHEROL
  13. CA++ [Concomitant]

REACTIONS (7)
  - Eye pain [None]
  - Eye pruritus [None]
  - Eyelid disorder [None]
  - Blepharitis [None]
  - Erythema of eyelid [None]
  - Vision blurred [None]
  - Lacrimation increased [None]

NARRATIVE: CASE EVENT DATE: 20210408
